FAERS Safety Report 7326050-3 (Version None)
Quarter: 2011Q1

REPORT INFORMATION
  Report Type: 
  Country: None (occurrence: None)
  Receive Date: 20110302
  Receipt Date: 20110225
  Transmission Date: 20110831
  Serious: No
  Sender: FDA-Public Use
  Company Number: US-TEVA-268893USA

PATIENT
  Sex: Female
  Weight: 55.388 kg

DRUGS (3)
  1. DOXYCYCLINE [Concomitant]
  2. ALBUTEROL SULFATE AUTOHALER [Suspect]
     Route: 055
     Dates: start: 20110223
  3. PREDNISONE [Concomitant]

REACTIONS (2)
  - ORAL DISORDER [None]
  - RASH MACULAR [None]
